FAERS Safety Report 19303299 (Version 1)
Quarter: 2021Q2

REPORT INFORMATION
  Report Type: Spontaneous
  Country: US (occurrence: US)
  Receive Date: 20210525
  Receipt Date: 20210525
  Transmission Date: 20210717
  Serious: No
  Sender: FDA-Public Use
  Company Number: US-LUPIN PHARMACEUTICALS INC.-2021-07571

PATIENT
  Age: 15 Year
  Sex: Female

DRUGS (3)
  1. TRIAMCINOLONE [Suspect]
     Active Substance: TRIAMCINOLONE
     Indication: DERMATITIS ATOPIC
     Dosage: 0.025 PERCENT
     Route: 065
  2. TRIAMCINOLONE [Suspect]
     Active Substance: TRIAMCINOLONE
     Dosage: 0.5 PERCENT
     Route: 065
  3. FLUOCINOLONE [Suspect]
     Active Substance: FLUOCINOLONE
     Indication: DERMATITIS ATOPIC
     Dosage: 0.01 PERCENT (OIL)
     Route: 065

REACTIONS (1)
  - Drug ineffective [Unknown]
